FAERS Safety Report 10896341 (Version 1)
Quarter: 2015Q1

REPORT INFORMATION
  Report Type: Spontaneous
  Country: DE (occurrence: DE)
  Receive Date: 20150309
  Receipt Date: 20150309
  Transmission Date: 20150721
  Serious: Yes (Other)
  Sender: FDA-Public Use
  Company Number: DE-ACCORD-029083

PATIENT
  Age: 64 Year
  Sex: Male
  Weight: 67 kg

DRUGS (3)
  1. GEMCITABINE/GEMCITABINE HYDROCHLORIDE [Suspect]
     Active Substance: GEMCITABINE\GEMCITABINE HYDROCHLORIDE
     Indication: PANCREATIC CARCINOMA METASTATIC
     Route: 042
     Dates: start: 20150116
  2. ABRAXANE [Suspect]
     Active Substance: PACLITAXEL
     Indication: PANCREATIC CARCINOMA METASTATIC
     Route: 042
     Dates: start: 20150116
  3. CEFOTAXIME [Suspect]
     Active Substance: CEFOTAXIME\CEFOTAXIME SODIUM
     Indication: PNEUMONIA
     Dosage: DAILY DOSE: 4 G GRAM(S) EVERY DAYS
     Route: 042
     Dates: start: 20150116, end: 20150126

REACTIONS (5)
  - Pruritus [Recovering/Resolving]
  - Infusion site erythema [Recovering/Resolving]
  - Dermatitis exfoliative [Recovering/Resolving]
  - Impaired healing [Unknown]
  - Dry skin [Unknown]

NARRATIVE: CASE EVENT DATE: 20150116
